FAERS Safety Report 5717723-4 (Version None)
Quarter: 2008Q2

REPORT INFORMATION
  Report Type: 
  Country: None (occurrence: None)
  Receive Date: 20080425
  Receipt Date: 20080414
  Transmission Date: 20081010
  Serious: Yes (Hospitalization)
  Sender: FDA-Public Use
  Company Number: US-AMGEN-STX268632

PATIENT
  Sex: Female
  Weight: 134.8 kg

DRUGS (1)
  1. ENBREL [Suspect]
     Indication: PSORIASIS
     Route: 058
     Dates: start: 20071211

REACTIONS (3)
  - DIZZINESS [None]
  - HYPERHIDROSIS [None]
  - WHITE BLOOD CELL COUNT INCREASED [None]
